FAERS Safety Report 4579153-0 (Version None)
Quarter: 2005Q1

REPORT INFORMATION
  Report Type: 
  Country: None (occurrence: None)
  Receive Date: 20050208
  Receipt Date: 20050208
  Transmission Date: 20050727
  Serious: Yes (Hospitalization)
  Sender: FDA-Public Use
  Company Number: None

PATIENT
  Age: 76 Year
  Sex: Female
  Weight: 57.1532 kg

DRUGS (13)
  1. TAXOL [Suspect]
     Indication: OVARIAN CANCER
     Dosage: TAXOL135 MG/M2 CYCLE WK 7
     Dates: start: 20050106
  2. TAXOL [Suspect]
     Indication: OVARIAN CANCER
     Dosage: TAXOL135 MG/M2 CYCLE WK 7
     Dates: start: 20050126
  3. GEMZAR [Suspect]
     Indication: OVARIAN CANCER
     Dosage: 600MG/M2 CYCLE WK 7
     Dates: start: 20050106
  4. GEMZAR [Suspect]
     Indication: OVARIAN CANCER
     Dosage: 600MG/M2 CYCLE WK 7
     Dates: start: 20050126
  5. CARBOPLATIN [Suspect]
     Indication: OVARIAN CANCER
     Dosage: CARBOPLATIN AUC =4
     Dates: start: 20050106
  6. CARBOPLATIN [Suspect]
     Indication: OVARIAN CANCER
     Dosage: CARBOPLATIN AUC =4
     Dates: start: 20050126
  7. NEUMEGA [Concomitant]
  8. NEULASTA [Concomitant]
  9. PROCRIT [Concomitant]
  10. DEXAMETHASONE [Concomitant]
  11. PEPCID [Concomitant]
  12. KYTRIL [Concomitant]
  13. BENADRYL [Concomitant]

REACTIONS (4)
  - EPISTAXIS [None]
  - HAEMOGLOBIN DECREASED [None]
  - OEDEMA PERIPHERAL [None]
  - PLATELET COUNT DECREASED [None]
